FAERS Safety Report 12434647 (Version 1)
Quarter: 2016Q2

REPORT INFORMATION
  Report Type: Spontaneous
  Country: BR (occurrence: BR)
  Receive Date: 20160603
  Receipt Date: 20160603
  Transmission Date: 20160815
  Serious: Yes (Other)
  Sender: FDA-Public Use
  Company Number: PHHY2016BR074468

PATIENT
  Age: 82 Year
  Sex: Male
  Weight: 70 kg

DRUGS (3)
  1. EXELON PATCH [Suspect]
     Active Substance: RIVASTIGMINE
     Indication: CEREBROVASCULAR ACCIDENT
     Dosage: 4.6 MG, (9 MG/ 5 CM2 PATCH) QD
     Route: 062
  2. EXELON PATCH [Suspect]
     Active Substance: RIVASTIGMINE
     Indication: DEMENTIA
     Dosage: 2 DF (2 PATCHES OF 9 MG/ 5 CM2) QD
     Route: 062
  3. EXELON PATCH [Suspect]
     Active Substance: RIVASTIGMINE
     Dosage: 4.6 MG, (9 MG/ 5 CM2 PATCH) QD
     Route: 062

REACTIONS (6)
  - Diarrhoea [Recovered/Resolved]
  - Product use issue [Unknown]
  - Dementia [Unknown]
  - Cerebrovascular accident [Recovering/Resolving]
  - Dizziness [Recovered/Resolved]
  - Drug administration error [Unknown]

NARRATIVE: CASE EVENT DATE: 20160508
